FAERS Safety Report 12947487 (Version 1)
Quarter: 2016Q4

REPORT INFORMATION
  Report Type: Spontaneous
  Country: CN (occurrence: CN)
  Receive Date: 20161116
  Receipt Date: 20161116
  Transmission Date: 20170207
  Serious: Yes (Life-Threatening)
  Sender: FDA-Public Use
  Company Number: CN-NOVOPROD-518474

PATIENT
  Age: 25 Year
  Sex: Female

DRUGS (1)
  1. NOVOLIN 30R [Suspect]
     Active Substance: INSULIN HUMAN
     Indication: PRODUCT USED FOR UNKNOWN INDICATION
     Dosage: 2400 IU, SINGLE
     Route: 065
     Dates: start: 20161106, end: 20161106

REACTIONS (2)
  - Intentional overdose [Unknown]
  - Hypoglycaemic coma [Unknown]

NARRATIVE: CASE EVENT DATE: 20161106
